FAERS Safety Report 5069575-6 (Version None)
Quarter: 2006Q3

REPORT INFORMATION
  Report Type: 
  Country: None (occurrence: None)
  Receive Date: 20060731
  Receipt Date: 20060609
  Transmission Date: 20061208
  Serious: Yes (Hospitalization)
  Sender: FDA-Public Use
  Company Number: DSA_28505_2006

PATIENT
  Age: 70 Year
  Sex: Male

DRUGS (8)
  1. BI-TILDIEM [Suspect]
     Indication: HYPERTENSION
     Dosage: DF PO
     Route: 048
  2. IKOREL [Suspect]
     Dosage: DF PO
     Route: 048
  3. PYRALVEX [Concomitant]
  4. CHLORHEXIDINE [Concomitant]
  5. CHLOROBUTANOL [Concomitant]
  6. BOROSTYROL [Concomitant]
  7. LIDOCAINE [Concomitant]
  8. SODIUM BICARBONATE [Concomitant]

REACTIONS (8)
  - BALANITIS [None]
  - C-REACTIVE PROTEIN INCREASED [None]
  - HAEMOGLOBIN DECREASED [None]
  - PRURITUS [None]
  - RED BLOOD CELL SEDIMENTATION RATE INCREASED [None]
  - SCROTAL ERYTHEMA [None]
  - TONGUE ULCERATION [None]
  - XEROSIS [None]
